FAERS Safety Report 7555103-X (Version None)
Quarter: 2011Q2

REPORT INFORMATION
  Report Type: 
  Country: None (occurrence: None)
  Receive Date: 20110617
  Receipt Date: 20110607
  Transmission Date: 20111010
  Serious: Yes (Hospitalization)
  Sender: FDA-Public Use
  Company Number: GB-BRISTOL-MYERS SQUIBB COMPANY-15808132

PATIENT
  Age: 61 Year
  Sex: Male

DRUGS (6)
  1. SIMVASTATIN [Suspect]
     Route: 065
  2. DIPYRIDAMOLE [Concomitant]
     Route: 065
  3. ASPIRIN [Concomitant]
     Route: 065
  4. CLOPIDOGREL BISULFATE [Suspect]
     Route: 065
  5. OMEPRAZOLE [Suspect]
     Route: 065
  6. PENICILLIN V POTASSIUM [Suspect]
     Route: 065

REACTIONS (16)
  - DECREASED APPETITE [None]
  - SLEEP DISORDER [None]
  - ALANINE AMINOTRANSFERASE INCREASED [None]
  - RESTLESSNESS [None]
  - CEREBROVASCULAR ACCIDENT [None]
  - PYREXIA [None]
  - VOMITING [None]
  - LIVER INJURY [None]
  - HEPATITIS E [None]
  - HEADACHE [None]
  - WEIGHT DECREASED [None]
  - JAUNDICE [None]
  - ABDOMINAL PAIN UPPER [None]
  - CHROMATURIA [None]
  - BLOOD ALKALINE PHOSPHATASE INCREASED [None]
  - GAMMA-GLUTAMYLTRANSFERASE INCREASED [None]
